FAERS Safety Report 5844620-6 (Version None)
Quarter: 2008Q3

REPORT INFORMATION
  Report Type: 
  Country: None (occurrence: None)
  Receive Date: 20080812
  Receipt Date: 20080731
  Transmission Date: 20090109
  Serious: Yes (Life-Threatening)
  Sender: FDA-Public Use
  Company Number: 2008TJ0179

PATIENT
  Age: 32 Year
  Sex: Male

DRUGS (2)
  1. EPINEPHRINE [Suspect]
     Indication: ANAPHYLACTIC REACTION
     Dosage: 0.3 MG., SUBCUTANEOUS/INTRAMUSCULAR
     Dates: start: 20080701, end: 20080701
  2. ZANTAC [Concomitant]

REACTIONS (3)
  - DEVICE MALFUNCTION [None]
  - DRUG ADMINISTRATION ERROR [None]
  - EXPIRED DRUG ADMINISTERED [None]
